FAERS Safety Report 4648345-4 (Version None)
Quarter: 2005Q2

REPORT INFORMATION
  Report Type: 
  Country: None (occurrence: None)
  Receive Date: 20050427
  Receipt Date: 20050411
  Transmission Date: 20051028
  Serious: Yes (Hospitalization)
  Sender: FDA-Public Use
  Company Number: EWC050443503

PATIENT
  Age: 19 Year
  Sex: Male

DRUGS (5)
  1. OLANZAPINE [Suspect]
     Indication: PSYCHOTIC DISORDER
     Dosage: 5 MG DAY
     Dates: start: 20050110, end: 20050210
  2. NEXIUM [Concomitant]
  3. TRAMADOL HCL [Concomitant]
  4. LORAZEPAM [Concomitant]
  5. FRAXIPARINE (NADROPARIN CALCIUM) [Concomitant]

REACTIONS (7)
  - BLOOD CALCIUM INCREASED [None]
  - DRUG WITHDRAWAL SYNDROME [None]
  - INFLAMMATION [None]
  - NEUROLEPTIC MALIGNANT SYNDROME [None]
  - PROSTATITIS [None]
  - PSYCHOTIC DISORDER [None]
  - REBOUND EFFECT [None]
